FAERS Safety Report 8047765-8 (Version None)
Quarter: 2012Q1

REPORT INFORMATION
  Report Type: 
  Country: None (occurrence: None)
  Receive Date: 20120116
  Receipt Date: 20120110
  Transmission Date: 20120608
  Serious: Yes (Disabling, Other)
  Sender: FDA-Public Use
  Company Number: US-TEVA-317609USA

PATIENT
  Sex: Male

DRUGS (3)
  1. PROPOXYPHENE NAPSYLATE W/ ACETAMINOPHEN [Suspect]
     Indication: PAIN
  2. PROPACET 100 [Suspect]
  3. PROPOXYPHENE HCL [Suspect]

REACTIONS (5)
  - NERVOUS SYSTEM DISORDER [None]
  - MOVEMENT DISORDER [None]
  - ECONOMIC PROBLEM [None]
  - MULTIPLE INJURIES [None]
  - PAIN [None]
